FAERS Safety Report 8135886-0 (Version None)
Quarter: 2012Q1

REPORT INFORMATION
  Report Type: 
  Country: None (occurrence: None)
  Receive Date: 20120214
  Receipt Date: 20120206
  Transmission Date: 20120608
  Serious: Yes (Hospitalization)
  Sender: FDA-Public Use
  Company Number: JP-GLAXOSMITHKLINE-B0780775A

PATIENT

DRUGS (2)
  1. FLUTICASONE PROPIONATE/SALMETEROL [Suspect]
     Dosage: 500MCG PER DAY
     Route: 055
     Dates: start: 20110622
  2. PULMICORT-100 [Concomitant]
     Dosage: 1200MCG PER DAY
     Route: 055

REACTIONS (8)
  - LEUKOPLAKIA ORAL [None]
  - ORAL PAIN [None]
  - INSOMNIA [None]
  - LICHEN PLANUS [None]
  - EATING DISORDER [None]
  - EMPHYSEMA [None]
  - DYSPHONIA [None]
  - ORAL CANDIDIASIS [None]
